FAERS Safety Report 6834829-7 (Version None)
Quarter: 2010Q3

REPORT INFORMATION
  Report Type: 
  Country: None (occurrence: None)
  Receive Date: 20100712
  Receipt Date: 20071116
  Transmission Date: 20110219
  Serious: No
  Sender: FDA-Public Use
  Company Number: US-PFIZER INC-2007022620

PATIENT
  Sex: Female
  Weight: 69.4 kg

DRUGS (3)
  1. CHANTIX [Suspect]
     Indication: SMOKING CESSATION THERAPY
     Dates: start: 20070101, end: 20070401
  2. CHANTIX [Suspect]
     Indication: NICOTINE DEPENDENCE
  3. WELLBUTRIN [Concomitant]
     Indication: DEPRESSION

REACTIONS (6)
  - DEPRESSION [None]
  - FLATULENCE [None]
  - IRRITABILITY [None]
  - NAUSEA [None]
  - PERSONALITY CHANGE [None]
  - WEIGHT INCREASED [None]
